FAERS Safety Report 5122144-1 (Version None)
Quarter: 2006Q4

REPORT INFORMATION
  Report Type: 
  Country: None (occurrence: None)
  Receive Date: 20061004
  Receipt Date: 20061004
  Transmission Date: 20070319
  Serious: Yes (Hospitalization)
  Sender: FDA-Public Use
  Company Number: None

PATIENT
  Sex: Female
  Weight: 64 kg

DRUGS (2)
  1. YASMIN [Suspect]
     Indication: CONTRACEPTION
     Dosage: 1 PILL DAILY PO
     Route: 048
     Dates: start: 20060901, end: 20060925
  2. YASMIN [Suspect]
     Indication: ENDOMETRIOSIS
     Dosage: 1 PILL DAILY PO
     Route: 048
     Dates: start: 20060901, end: 20060925

REACTIONS (6)
  - DEEP VEIN THROMBOSIS [None]
  - DIZZINESS [None]
  - FALL [None]
  - MOVEMENT DISORDER [None]
  - PULMONARY EMBOLISM [None]
  - TACHYCARDIA [None]
